FAERS Safety Report 7422553-1 (Version None)
Quarter: 2011Q2

REPORT INFORMATION
  Report Type: 
  Country: None (occurrence: None)
  Receive Date: 20110408
  Receipt Date: 20110331
  Transmission Date: 20111010
  Serious: Yes (Other)
  Sender: FDA-Public Use
  Company Number: 201110120

PATIENT
  Age: 39 Year
  Sex: Male

DRUGS (1)
  1. GABALON INTRATHECAL(BACLOFEN INJECTION) [Suspect]
     Indication: MUSCLE SPASTICITY
     Dosage: DAILY, INTRATHECAL
     Route: 037

REACTIONS (4)
  - IMPLANT SITE EFFUSION [None]
  - DEVICE DAMAGE [None]
  - DEVICE LEAKAGE [None]
  - DEVICE RELATED INFECTION [None]
